FAERS Safety Report 15613646 (Version 1)
Quarter: 2018Q4

REPORT INFORMATION
  Report Type: Report from Study
  Country: IN (occurrence: IN)
  Receive Date: 20181113
  Receipt Date: 20181113
  Transmission Date: 20190205
  Serious: Yes (Life-Threatening, Hospitalization)
  Sender: FDA-Public Use
  Company Number: IN-MYLANLABS-2018M1083660

PATIENT
  Age: 9 Year
  Sex: Female

DRUGS (1)
  1. SODIUM TETRADECYL SULFATE [Suspect]
     Active Substance: SODIUM TETRADECYL SULFATE
     Indication: MALFORMATION VENOUS
     Dosage: 3% SODIUM TETRADECYL SULFATE FOAM INJECTED AT A DOSE OF 5ML INTO THE VASCULAR SPACES UNDER FLUORO...
     Route: 026

REACTIONS (1)
  - Swollen tongue [Recovered/Resolved]
